FAERS Safety Report 21080590 (Version 1)
Quarter: 2022Q3

REPORT INFORMATION
  Report Type: Spontaneous
  Country: US (occurrence: US)
  Receive Date: 20220714
  Receipt Date: 20220714
  Transmission Date: 20221027
  Serious: No
  Sender: FDA-Public Use
  Company Number: US-RECKITT BENCKISER HEALTHCARE INT LIMITED-RB-081054-2022

PATIENT
  Age: 70 Year
  Sex: Female
  Weight: 49.433 kg

DRUGS (4)
  1. MUCINEX [Suspect]
     Active Substance: GUAIFENESIN
     Indication: Product used for unknown indication
     Dosage: 10 MILLILITER, QD
     Route: 048
     Dates: start: 202112, end: 202201
  2. LORAZEPAM [Concomitant]
     Active Substance: LORAZEPAM
     Indication: Product used for unknown indication
     Dosage: UNK
     Route: 065
  3. PROPRANOLOL [Concomitant]
     Active Substance: PROPRANOLOL HYDROCHLORIDE
     Indication: Product used for unknown indication
     Dosage: UNK
     Route: 065
  4. LACTULOSE [Concomitant]
     Active Substance: LACTULOSE
     Indication: Product used for unknown indication
     Dosage: UNK
     Route: 065

REACTIONS (1)
  - Epistaxis [Recovering/Resolving]

NARRATIVE: CASE EVENT DATE: 20211201
